FAERS Safety Report 4406749-9 (Version None)
Quarter: 2004Q3

REPORT INFORMATION
  Report Type: 
  Country: None (occurrence: None)
  Receive Date: 20040715
  Receipt Date: 20040702
  Transmission Date: 20050211
  Serious: Yes (Disabling)
  Sender: FDA-Public Use
  Company Number: 2004AP03286

PATIENT
  Age: 58 Year
  Sex: Female
  Weight: 53 kg

DRUGS (14)
  1. OMEPRAL [Suspect]
     Indication: GASTRIC ULCER
     Dosage: 20 MG DAILY PO
     Route: 048
     Dates: start: 20040527, end: 20040603
  2. OMEPRAL [Suspect]
     Indication: HELICOBACTER INFECTION
     Dosage: 20 MG DAILY PO
     Route: 048
     Dates: start: 20040527, end: 20040603
  3. OMEPRAL [Suspect]
     Indication: GASTRIC ULCER
     Dosage: 40 MG DAILY PO
     Route: 048
     Dates: start: 20040604, end: 20040610
  4. OMEPRAL [Suspect]
     Indication: HELICOBACTER INFECTION
     Dosage: 40 MG DAILY PO
     Route: 048
     Dates: start: 20040604, end: 20040610
  5. OMEPRAL [Suspect]
     Indication: GASTRIC ULCER
     Dosage: 20 MG DAILY PO
     Route: 048
     Dates: start: 20040611, end: 20040616
  6. OMEPRAL [Suspect]
     Indication: HELICOBACTER INFECTION
     Dosage: 20 MG DAILY PO
     Route: 048
     Dates: start: 20040611, end: 20040616
  7. CLARITHROMYCIN [Concomitant]
  8. SAWACILLIN [Concomitant]
  9. LEXOTAN [Concomitant]
  10. RIVOTRIL [Concomitant]
  11. TEGRETOL [Concomitant]
  12. CONSTAN [Concomitant]
  13. RIZE [Concomitant]
  14. ALTAT [Concomitant]

REACTIONS (3)
  - EATING DISORDER [None]
  - PAIN [None]
  - STOMATITIS [None]
